FAERS Safety Report 20879927 (Version 1)
Quarter: 2022Q2

REPORT INFORMATION
  Report Type: Spontaneous
  Country: US (occurrence: US)
  Receive Date: 20220526
  Receipt Date: 20220526
  Transmission Date: 20220720
  Serious: No
  Sender: FDA-Public Use
  Company Number: US-MYLANLABS-2022M1033837

PATIENT
  Sex: Male
  Weight: 63.05 kg

DRUGS (1)
  1. CYSTAGON [Suspect]
     Active Substance: CYSTEAMINE BITARTRATE
     Indication: Cystinosis
     Dosage: 450 MILLIGRAM, QID (450 MG, 4 TIMES DAILY BY MOUTH)
     Route: 048
     Dates: start: 200602

REACTIONS (1)
  - Pain [Unknown]
